FAERS Safety Report 7265226-0 (Version None)
Quarter: 2011Q1

REPORT INFORMATION
  Report Type: 
  Country: None (occurrence: None)
  Receive Date: 20110131
  Receipt Date: 20110121
  Transmission Date: 20110831
  Serious: Yes (Other)
  Sender: FDA-Public Use
  Company Number: IT-MPIJNJ-2010-02140

PATIENT

DRUGS (1)
  1. VELCADE [Suspect]
     Indication: MULTIPLE MYELOMA
     Dosage: UNK
     Dates: start: 20100301, end: 20100331

REACTIONS (3)
  - THROMBOCYTOPENIA [None]
  - HAEMOLYSIS [None]
  - LIVER FUNCTION TEST ABNORMAL [None]
